FAERS Safety Report 11841478 (Version 1)
Quarter: 2015Q4

REPORT INFORMATION
  Report Type: Other
  Country: CA (occurrence: CA)
  Receive Date: 20151216
  Receipt Date: 20151216
  Transmission Date: 20160305
  Serious: Yes (Other)
  Sender: FDA-Public Use
  Company Number: CA-APOTEX-2015AP015108

PATIENT
  Age: 41 Year
  Sex: Female

DRUGS (1)
  1. APO-FLUCONAZOLE-150 [Suspect]
     Active Substance: FLUCONAZOLE
     Indication: PRODUCT USED FOR UNKNOWN INDICATION
     Route: 065

REACTIONS (5)
  - Oral pruritus [Unknown]
  - Skin lesion [Unknown]
  - Rhinorrhoea [Unknown]
  - Chills [Unknown]
  - Skin disorder [Unknown]
